FAERS Safety Report 22060943 (Version 1)
Quarter: 2023Q1

REPORT INFORMATION
  Report Type: Spontaneous
  Country: US (occurrence: US)
  Receive Date: 20230303
  Receipt Date: 20230303
  Transmission Date: 20230418
  Serious: No
  Sender: FDA-Public Use
  Company Number: US-PFIZER INC-202300087997

PATIENT
  Age: 82 Year
  Sex: Female

DRUGS (1)
  1. GEMFIBROZIL [Suspect]
     Active Substance: GEMFIBROZIL
     Indication: Blood triglycerides abnormal
     Dosage: UNK

REACTIONS (1)
  - Hypoacusis [Unknown]
